FAERS Safety Report 8023459-X (Version None)
Quarter: 2012Q1

REPORT INFORMATION
  Report Type: 
  Country: None (occurrence: None)
  Receive Date: 20120105
  Receipt Date: 20111228
  Transmission Date: 20120608
  Serious: Yes (Hospitalization)
  Sender: FDA-Public Use
  Company Number: US-BIOGENIDEC-2010BI045274

PATIENT
  Age: 61 Year
  Sex: Female

DRUGS (2)
  1. AVONEX [Suspect]
     Indication: MULTIPLE SCLEROSIS
     Route: 030
     Dates: start: 20090403
  2. AVONEX [Suspect]
     Route: 030
     Dates: start: 19990101

REACTIONS (2)
  - CEREBROVASCULAR DISORDER [None]
  - CEREBROVASCULAR ACCIDENT [None]
